FAERS Safety Report 16299508 (Version 1)
Quarter: 2019Q2

REPORT INFORMATION
  Report Type: Spontaneous
  Country: CA (occurrence: CA)
  Receive Date: 20190510
  Receipt Date: 20190510
  Transmission Date: 20190711
  Serious: Yes (Death, Other)
  Sender: FDA-Public Use
  Company Number: CA-ASTRAZENECA-2019SE70865

PATIENT
  Age: 56 Year
  Sex: Female
  Weight: 83 kg

DRUGS (1)
  1. IMFINZI [Suspect]
     Active Substance: DURVALUMAB
     Indication: NON-SMALL CELL LUNG CANCER STAGE III
     Dosage: 814.0MG 1 EVERY 2 WEEK(S)
     Route: 042

REACTIONS (4)
  - Dyspnoea [Unknown]
  - Pneumonitis [Unknown]
  - Oxygen therapy [Unknown]
  - Autoimmune dermatitis [Fatal]
